FAERS Safety Report 4815498-4 (Version None)
Quarter: 2005Q4

REPORT INFORMATION
  Report Type: 
  Country: None (occurrence: None)
  Receive Date: 20051028
  Receipt Date: 20051028
  Transmission Date: 20060501
  Serious: Yes (Life-Threatening, Other)
  Sender: FDA-Public Use
  Company Number: None

PATIENT
  Age: 71 Year
  Sex: Female
  Weight: 80 kg

DRUGS (4)
  1. DEPODUR [Suspect]
     Indication: SURGERY
     Dosage: 7.5 MG ONCE EPIDURAL
     Route: 008
     Dates: start: 20051012, end: 20051014
  2. VERSED [Concomitant]
  3. FENTANYL [Concomitant]
  4. NUBAIN [Concomitant]

REACTIONS (10)
  - BLOOD PRESSURE DECREASED [None]
  - COLD SWEAT [None]
  - HEADACHE [None]
  - NAUSEA [None]
  - NECK PAIN [None]
  - PRURITUS [None]
  - RESPIRATORY RATE DECREASED [None]
  - RETCHING [None]
  - SOMNOLENCE [None]
  - VOMITING [None]
